FAERS Safety Report 13287017 (Version 2)
Quarter: 2017Q2

REPORT INFORMATION
  Report Type: Spontaneous
  Country: GB (occurrence: GB)
  Receive Date: 20170302
  Receipt Date: 20170512
  Transmission Date: 20170830
  Serious: Yes (Disabling, Other)
  Sender: FDA-Public Use
  Company Number: GB-ELI_LILLY_AND_COMPANY-GB201701009865

PATIENT
  Sex: Female

DRUGS (3)
  1. HUMULIN M3 (MIXTURE 30/70) [Suspect]
     Active Substance: INSULIN HUMAN
     Dosage: 14 U, UNKNOWN
     Route: 065
  2. HUMULIN M3 (MIXTURE 30/70) [Suspect]
     Active Substance: INSULIN HUMAN
     Indication: PRODUCT USED FOR UNKNOWN INDICATION
     Dosage: UNK UNK, UNKNOWN
     Route: 065
  3. HUMULIN M3 (MIXTURE 30/70) [Suspect]
     Active Substance: INSULIN HUMAN
     Dosage: 14 U, UNKNOWN
     Route: 065

REACTIONS (4)
  - Cataract [Unknown]
  - Wrong technique in product usage process [Unknown]
  - Macular degeneration [Unknown]
  - Blindness [Unknown]
